FAERS Safety Report 10057586 (Version 2)
Quarter: 2014Q2

REPORT INFORMATION
  Report Type: Report from Study
  Country: CA (occurrence: CA)
  Receive Date: 20140404
  Receipt Date: 20140404
  Transmission Date: 20141212
  Serious: Yes (Hospitalization)
  Sender: FDA-Public Use
  Company Number: CA-ROCHE-1265460

PATIENT
  Sex: Female
  Weight: 73 kg

DRUGS (16)
  1. ACTEMRA [Suspect]
     Indication: RHEUMATOID ARTHRITIS
     Route: 042
     Dates: start: 20130703
  2. ACTEMRA [Suspect]
     Route: 042
     Dates: start: 20130827, end: 20131022
  3. PLAQUENIL [Concomitant]
  4. MORPHINE [Concomitant]
  5. CELECOXIB [Concomitant]
  6. DIAZEPAM [Concomitant]
  7. DULOXETINE [Concomitant]
  8. NEXIUM [Concomitant]
  9. GABAPENTIN [Concomitant]
  10. HYDROCHLOROTHIAZIDE [Concomitant]
  11. MIRTAZAPINE [Concomitant]
  12. PRAMIPEXOLE DIHYDROCHLORIDE [Concomitant]
  13. RISPERIDONE [Concomitant]
  14. ARAVA [Concomitant]
  15. VENTOLIN [Concomitant]
  16. VITAMIN B12 [Concomitant]

REACTIONS (3)
  - Influenza [Unknown]
  - Respiratory distress [Unknown]
  - Weight decreased [Unknown]
